FAERS Safety Report 6241562-1 (Version None)
Quarter: 2009Q2

REPORT INFORMATION
  Report Type: 
  Country: None (occurrence: None)
  Receive Date: 20090623
  Receipt Date: 20040211
  Transmission Date: 20091009
  Serious: Yes (Hospitalization)
  Sender: FDA-Public Use
  Company Number: BR-ROCHE-352407

PATIENT
  Sex: Male
  Weight: 54.9 kg

DRUGS (32)
  1. DACLIZUMAB [Suspect]
     Dosage: WEEK 8 VISIT
     Route: 042
     Dates: start: 20030926
  2. MYCOPHENOLATE MOFETIL [Suspect]
     Route: 048
     Dates: start: 20030811
  3. MYCOPHENOLATE MOFETIL [Suspect]
     Route: 048
     Dates: start: 20030911
  4. MYCOPHENOLATE MOFETIL [Suspect]
     Route: 048
     Dates: start: 20031111, end: 20031112
  5. MYCOPHENOLATE MOFETIL [Suspect]
     Route: 048
     Dates: start: 20031124
  6. MYCOPHENOLATE MOFETIL [Suspect]
     Route: 048
     Dates: start: 20040609
  7. MYCOPHENOLATE MOFETIL [Suspect]
     Route: 048
     Dates: start: 20050215
  8. CYCLOSPORINE [Suspect]
     Dosage: DRUG: CYCLOSPORINE
     Route: 048
     Dates: start: 20030811
  9. CYCLOSPORINE [Suspect]
     Route: 048
     Dates: start: 20040226
  10. CYCLOSPORINE [Suspect]
     Route: 048
     Dates: start: 20040324
  11. CYCLOSPORINE [Suspect]
     Route: 048
     Dates: start: 20040609
  12. CYCLOSPORINE [Suspect]
     Route: 048
     Dates: start: 20050114
  13. PREDNISONE [Suspect]
     Route: 048
     Dates: start: 20030811
  14. PREDNISONE [Suspect]
     Route: 048
     Dates: start: 20040107
  15. PREDNISONE [Suspect]
     Route: 048
     Dates: start: 20040519
  16. PREDNISONE [Suspect]
     Route: 048
     Dates: start: 20040811
  17. ADALAT [Concomitant]
     Route: 048
     Dates: start: 20030812, end: 20030813
  18. ADALAT [Concomitant]
     Route: 048
     Dates: start: 20030815
  19. ADALAT [Concomitant]
     Route: 048
     Dates: start: 20040226
  20. PROPRANOLOL HYDROCHLORIDE [Concomitant]
     Route: 048
     Dates: start: 20030813
  21. PROPRANOLOL HYDROCHLORIDE [Concomitant]
     Route: 048
     Dates: start: 20040226
  22. PROPRANOLOL HYDROCHLORIDE [Concomitant]
     Route: 048
     Dates: start: 20050215
  23. CEFAZOLIN [Concomitant]
     Route: 042
     Dates: start: 20030811
  24. CLONIDINE [Concomitant]
     Route: 048
     Dates: start: 20030819, end: 20040723
  25. GANCICLOVIR [Concomitant]
     Route: 042
     Dates: start: 20030822
  26. GANCICLOVIR [Concomitant]
     Route: 042
     Dates: end: 20030905
  27. GANCICLOVIR [Concomitant]
     Route: 042
     Dates: start: 20031118
  28. GANCICLOVIR [Concomitant]
     Route: 042
     Dates: start: 20031121, end: 20031209
  29. MINOXIDIL [Concomitant]
     Route: 048
     Dates: start: 20030501, end: 20030815
  30. MINOXIDIL [Concomitant]
     Route: 048
     Dates: start: 20030817, end: 20030817
  31. GANCICLOVIR [Concomitant]
     Route: 048
     Dates: start: 20030905, end: 20030905
  32. SULFAMETHOXAZOLE AND TRIMETHOPRIM [Concomitant]
     Dosage: DRUG: SULFAMETHOXAZOLE + TRIMETHOPRIM
     Route: 048
     Dates: start: 20030904, end: 20040211

REACTIONS (1)
  - CYTOMEGALOVIRUS INFECTION [None]
